FAERS Safety Report 4968964-5 (Version None)
Quarter: 2006Q2

REPORT INFORMATION
  Report Type: 
  Country: None (occurrence: None)
  Receive Date: 20060411
  Receipt Date: 20051018
  Transmission Date: 20061013
  Serious: Yes (Hospitalization)
  Sender: FDA-Public Use
  Company Number: US-MERCK-0510USA07805

PATIENT
  Age: 76 Year
  Sex: Male
  Weight: 78 kg

DRUGS (4)
  1. VIOXX [Suspect]
     Indication: ARTHRALGIA
     Route: 048
     Dates: start: 20010327, end: 20040801
  2. VIOXX [Suspect]
     Route: 048
     Dates: start: 20000926, end: 20011101
  3. VIOXX [Suspect]
     Indication: BACK PAIN
     Route: 048
     Dates: start: 20010327, end: 20040801
  4. VIOXX [Suspect]
     Route: 048
     Dates: start: 20000926, end: 20011101

REACTIONS (23)
  - ACUTE MYOCARDIAL INFARCTION [None]
  - ANAEMIA [None]
  - ARTERIOSCLEROSIS CORONARY ARTERY [None]
  - BLADDER DISORDER [None]
  - BLOOD ELECTROLYTES ABNORMAL [None]
  - BLOOD TESTOSTERONE DECREASED [None]
  - CARDIAC FAILURE CONGESTIVE [None]
  - CHEST PAIN [None]
  - CORONARY ARTERY DISEASE [None]
  - ESCHERICHIA SEPSIS [None]
  - FISTULA [None]
  - HEPATIC STEATOSIS [None]
  - HYDRONEPHROSIS [None]
  - HYPERTENSION [None]
  - HYPOTENSION [None]
  - HYPOVOLAEMIA [None]
  - ISCHAEMIC CARDIOMYOPATHY [None]
  - RENAL FAILURE ACUTE [None]
  - SEPSIS [None]
  - SEPTIC SHOCK [None]
  - SUPRAVENTRICULAR TACHYCARDIA [None]
  - SYNCOPE [None]
  - UROSEPSIS [None]
